FAERS Safety Report 10290462 (Version 1)
Quarter: 2014Q3

REPORT INFORMATION
  Report Type: Spontaneous
  Country: US (occurrence: None)
  Receive Date: 20140707
  Receipt Date: 20140707
  Transmission Date: 20150326
  Serious: Yes (Disabling)
  Sender: FDA-Public Use
  Company Number: None

PATIENT
  Age: 60 Year
  Sex: Female
  Weight: 104.33 kg

DRUGS (1)
  1. ALENDRONATE [Suspect]
     Active Substance: ALENDRONATE SODIUM
     Indication: OSTEOPENIA
     Route: 048
     Dates: start: 20140405, end: 20140626

REACTIONS (5)
  - Arthralgia [None]
  - Back pain [None]
  - Gait disturbance [None]
  - Dysphagia [None]
  - Dysstasia [None]

NARRATIVE: CASE EVENT DATE: 20140405
